FAERS Safety Report 5074740-8 (Version None)
Quarter: 2006Q3

REPORT INFORMATION
  Report Type: 
  Country: None (occurrence: None)
  Receive Date: 20060807
  Receipt Date: 20060725
  Transmission Date: 20061208
  Serious: Yes (Other)
  Sender: FDA-Public Use
  Company Number: GB200607004201

PATIENT
  Sex: Male

DRUGS (2)
  1. STRATTERA [Suspect]
     Indication: ATTENTION DEFICIT/HYPERACTIVITY DISORDER
     Dosage: 25 MG DAILY (1/D) ORAL
     Route: 048
     Dates: start: 20060527, end: 20060527
  2. CARBAMAZEPINE [Concomitant]

REACTIONS (6)
  - ANAPHYLACTIC REACTION [None]
  - DIZZINESS [None]
  - FATIGUE [None]
  - FEELING COLD [None]
  - RASH ERYTHEMATOUS [None]
  - SOMNOLENCE [None]
